FAERS Safety Report 9368790 (Version 2)
Quarter: 2013Q3

REPORT INFORMATION
  Report Type: Report from Study
  Country: IE (occurrence: IE)
  Receive Date: 20130626
  Receipt Date: 20130702
  Transmission Date: 20140515
  Serious: Yes (Other)
  Sender: FDA-Public Use
  Company Number: IE-009507513-1306IRL011771

PATIENT
  Age: 58 Year
  Sex: Male

DRUGS (2)
  1. VIRAFERONPEG [Suspect]
     Indication: HEPATITIS C
     Dosage: 150 MICROGRAM, WEEKLY
     Route: 058
     Dates: start: 20130415
  2. REBETOL [Suspect]
     Indication: HEPATITIS C
     Dosage: 600 MG DAILY DOSE (2 IN 1 DAY)
     Route: 048
     Dates: start: 20130415

REACTIONS (2)
  - Blood urea increased [Unknown]
  - Blood creatinine increased [Unknown]
